FAERS Safety Report 5679688-3 (Version None)
Quarter: 2008Q1

REPORT INFORMATION
  Report Type: 
  Country: None (occurrence: None)
  Receive Date: 20080325
  Receipt Date: 20080313
  Transmission Date: 20080703
  Serious: Yes (Other)
  Sender: FDA-Public Use
  Company Number: ZA-GILEAD-2008-0015663

PATIENT
  Age: 24 Year
  Sex: Female
  Weight: 71.7 kg

DRUGS (3)
  1. TRUVADA [Suspect]
     Indication: HIV INFECTION
     Route: 048
     Dates: start: 20080207
  2. ALUVIA [Suspect]
     Indication: HIV INFECTION
     Route: 048
     Dates: start: 20080207
  3. BACTRIM [Concomitant]

REACTIONS (10)
  - ANAEMIA [None]
  - BLOOD BICARBONATE ABNORMAL [None]
  - BLOOD CREATININE INCREASED [None]
  - CONDITION AGGRAVATED [None]
  - DEHYDRATION [None]
  - DIARRHOEA [None]
  - MALAISE [None]
  - METABOLIC ACIDOSIS [None]
  - PNEUMOCYSTIS JIROVECI PNEUMONIA [None]
  - VOMITING [None]
